FAERS Safety Report 8342342-3 (Version None)
Quarter: 2012Q2

REPORT INFORMATION
  Report Type: 
  Country: None (occurrence: None)
  Receive Date: 20120508
  Receipt Date: 20120425
  Transmission Date: 20120825
  Serious: Yes (Other)
  Sender: FDA-Public Use
  Company Number: GB-AMGEN-GBRSP2012003087

PATIENT
  Age: 43 Year
  Sex: Male
  Weight: 76.8 kg

DRUGS (3)
  1. ENBREL [Suspect]
     Dosage: UNK
     Dates: start: 20110915, end: 20120105
  2. ENBREL [Suspect]
     Indication: PSORIASIS
     Dosage: 50 MG, WEEKLY
     Dates: start: 20100902, end: 20110501
  3. LIPITOR [Concomitant]
     Indication: BLOOD CHOLESTEROL
     Dosage: 10 MG, 1X/DAY
     Route: 048
     Dates: start: 20110701

REACTIONS (4)
  - DRUG INEFFECTIVE [None]
  - PHARYNGITIS [None]
  - COUGH [None]
  - PSORIASIS [None]
